APPROVED DRUG PRODUCT: TRIAMTERENE AND HYDROCHLOROTHIAZIDE
Active Ingredient: HYDROCHLOROTHIAZIDE; TRIAMTERENE
Strength: 25MG;37.5MG
Dosage Form/Route: TABLET;ORAL
Application: A074026 | Product #001
Applicant: PLIVA INC
Approved: Apr 26, 1996 | RLD: No | RS: No | Type: DISCN